FAERS Safety Report 20895411 (Version 1)
Quarter: 2022Q2

REPORT INFORMATION
  Report Type: Other
  Country: NG (occurrence: None)
  Receive Date: 20220531
  Receipt Date: 20220531
  Transmission Date: 20220721
  Serious: Yes (Other)
  Sender: FDA-Public Use
  Company Number: NG-ROCHE-3104163

PATIENT
  Age: 38 Year
  Sex: Female
  Weight: 78 kg

DRUGS (2)
  1. HERCEPTIN [Suspect]
     Active Substance: TRASTUZUMAB
     Indication: Breast cancer stage II
     Route: 042
     Dates: start: 20220416
  2. PERJETA [Suspect]
     Active Substance: PERTUZUMAB
     Indication: Breast cancer stage II
     Route: 042
     Dates: start: 20220416

REACTIONS (3)
  - Transfusion [Not Recovered/Not Resolved]
  - Decreased appetite [Not Recovered/Not Resolved]
  - Asthenia [Not Recovered/Not Resolved]

NARRATIVE: CASE EVENT DATE: 20220519
